FAERS Safety Report 6306533-5 (Version None)
Quarter: 2009Q3

REPORT INFORMATION
  Report Type: 
  Country: None (occurrence: None)
  Receive Date: 20090812
  Receipt Date: 20090806
  Transmission Date: 20100115
  Serious: Yes (Life-Threatening, Hospitalization)
  Sender: FDA-Public Use
  Company Number: PT-CELGENEUS-130-21880-09050193

PATIENT
  Sex: Male
  Weight: 78 kg

DRUGS (16)
  1. REVLIMID [Suspect]
     Indication: MULTIPLE MYELOMA
     Route: 048
     Dates: start: 20090320, end: 20090409
  2. REVLIMID [Suspect]
     Route: 048
     Dates: start: 20090417, end: 20090507
  3. REVLIMID [Suspect]
     Route: 048
     Dates: start: 20090623
  4. DEXAMETHASONE [Suspect]
     Indication: MULTIPLE MYELOMA
     Route: 048
     Dates: start: 20090320, end: 20090416
  5. DEXAMETHASONE [Suspect]
     Route: 048
     Dates: start: 20090417, end: 20090514
  6. DEXAMETHASONE [Suspect]
     Route: 048
     Dates: start: 20090623
  7. DILTIAZEM [Concomitant]
     Indication: HYPERTENSION
     Route: 048
     Dates: start: 20090403
  8. TELMISARTAN [Concomitant]
     Indication: HYPERTENSION
     Route: 048
  9. ASPIRIN [Concomitant]
     Route: 048
     Dates: start: 20090320
  10. OMEPRAZOLE [Concomitant]
     Indication: PROPHYLAXIS
     Route: 048
     Dates: start: 20090320
  11. OMEPRAZOLE [Concomitant]
     Route: 051
     Dates: start: 20090430
  12. SUCRAFATE [Concomitant]
     Indication: PROPHYLAXIS
     Route: 048
     Dates: start: 20090428
  13. HYDROXIZINE [Concomitant]
     Indication: INSOMNIA
     Route: 048
  14. DIAZEPAM [Concomitant]
     Indication: SEDATIVE THERAPY
     Route: 048
     Dates: start: 20090508
  15. VALERIAN [Concomitant]
     Indication: SEDATIVE THERAPY
     Route: 048
  16. PARACETAMOL [Concomitant]
     Route: 051

REACTIONS (4)
  - HYPERGLYCAEMIA [None]
  - LUNG INFECTION [None]
  - MYOCARDIAL INFARCTION [None]
  - STENT OCCLUSION [None]
